FAERS Safety Report 7097770-3 (Version None)
Quarter: 2010Q4

REPORT INFORMATION
  Report Type: 
  Country: None (occurrence: None)
  Receive Date: 20101112
  Receipt Date: 20101102
  Transmission Date: 20110411
  Serious: Yes (Hospitalization)
  Sender: FDA-Public Use
  Company Number: US-ELI_LILLY_AND_COMPANY-US201008005443

PATIENT
  Sex: Male

DRUGS (14)
  1. HUMULIN 70/30 [Suspect]
     Indication: TYPE 2 DIABETES MELLITUS
     Dosage: 180 U, DAILY (1/D)
  2. HUMULIN 70/30 [Suspect]
     Dosage: 180 U, DAILY (1/D)
  3. GLIMEPIRIDE [Concomitant]
  4. FUROSEMIDE [Concomitant]
  5. NITROGLYCERIN [Concomitant]
  6. ALOPURINOL [Concomitant]
  7. DIGITEK [Concomitant]
  8. FINEURAL [Concomitant]
  9. ISOSORBIDE DINITRATE [Concomitant]
  10. ISRADIPINE [Concomitant]
  11. KLOR-CON [Concomitant]
  12. METOPROLOL [Concomitant]
  13. PLAVIX [Concomitant]
  14. TRICOR [Concomitant]

REACTIONS (5)
  - BLOOD GLUCOSE INCREASED [None]
  - DRUG INEFFECTIVE [None]
  - EPILEPSY [None]
  - HYPOGLYCAEMIA [None]
  - POOR QUALITY DRUG ADMINISTERED [None]
